FAERS Safety Report 10709792 (Version 1)
Quarter: 2015Q1

REPORT INFORMATION
  Report Type: Spontaneous
  Country: US (occurrence: None)
  Receive Date: 20150113
  Receipt Date: 20150113
  Transmission Date: 20150721
  Serious: Yes (Hospitalization)
  Sender: FDA-Public Use
  Company Number: None

PATIENT
  Age: 65 Year
  Sex: Male

DRUGS (1)
  1. STIVARGA [Suspect]
     Active Substance: REGORAFENIB
     Indication: BENIGN LYMPH NODE NEOPLASM
     Route: 048
     Dates: start: 20141209, end: 20150105

REACTIONS (1)
  - Central nervous system lesion [None]

NARRATIVE: CASE EVENT DATE: 20150104
